FAERS Safety Report 20768553 (Version 1)
Quarter: 2022Q2

REPORT INFORMATION
  Report Type: Spontaneous
  Country: US (occurrence: US)
  Receive Date: 20220429
  Receipt Date: 20220429
  Transmission Date: 20220721
  Serious: Yes (Other)
  Sender: FDA-Public Use
  Company Number: US-SANOFI-01078975

PATIENT
  Age: 56 Year
  Sex: Male

DRUGS (2)
  1. DUPIXENT [Suspect]
     Active Substance: DUPILUMAB
     Indication: Eczema
     Dosage: 300 MG, QOW
  2. PREDNISONE [Concomitant]
     Active Substance: PREDNISONE

REACTIONS (8)
  - Lymphoma [Unknown]
  - COVID-19 [Unknown]
  - Lymphadenopathy [Unknown]
  - Weight decreased [Unknown]
  - Rotator cuff syndrome [Unknown]
  - Pruritus [Unknown]
  - Eosinophilia [Unknown]
  - Eczema [Unknown]

NARRATIVE: CASE EVENT DATE: 20220101
